FAERS Safety Report 25575780 (Version 2)
Quarter: 2025Q3

REPORT INFORMATION
  Report Type: Report from Study
  Country: CN (occurrence: CN)
  Receive Date: 20250718
  Receipt Date: 20250923
  Transmission Date: 20251021
  Serious: Yes (Life-Threatening, Other)
  Sender: ROCHE
  Company Number: CN-ROCHE-3569018

PATIENT
  Age: 50 Year
  Sex: Male
  Weight: 62 kg

DRUGS (48)
  1. POLATUZUMAB VEDOTIN [Suspect]
     Active Substance: POLATUZUMAB VEDOTIN
     Indication: Diffuse large B-cell lymphoma
     Dosage: ON 15/APR/
     Route: 042
     Dates: start: 20240208, end: 20240208
  2. POLATUZUMAB VEDOTIN [Suspect]
     Active Substance: POLATUZUMAB VEDOTIN
     Dosage: ON 15/APR/
     Route: 042
     Dates: start: 20240415, end: 20240415
  3. POLATUZUMAB VEDOTIN [Suspect]
     Active Substance: POLATUZUMAB VEDOTIN
     Dosage: ON 15/APR/
     Route: 042
     Dates: start: 20240319, end: 20240319
  4. RITUXIMAB [Suspect]
     Active Substance: RITUXIMAB
     Indication: Diffuse large B-cell lymphoma
     Route: 042
     Dates: end: 20240414
  5. RITUXIMAB [Suspect]
     Active Substance: RITUXIMAB
     Indication: Diffuse large B-cell lymphoma
     Route: 042
     Dates: start: 20240207, end: 20240207
  6. RITUXIMAB [Suspect]
     Active Substance: RITUXIMAB
     Route: 042
     Dates: start: 20240318, end: 20240318
  7. TUCIDINOSTAT [Suspect]
     Active Substance: TUCIDINOSTAT
     Indication: Diffuse large B-cell lymphoma
     Route: 048
     Dates: start: 20240208, end: 20240317
  8. TUCIDINOSTAT [Suspect]
     Active Substance: TUCIDINOSTAT
     Route: 048
     Dates: start: 20240414, end: 20240414
  9. TUCIDINOSTAT [Suspect]
     Active Substance: TUCIDINOSTAT
     Route: 048
     Dates: start: 20240319, end: 20240319
  10. SELINEXOR [Suspect]
     Active Substance: SELINEXOR
     Indication: Diffuse large B-cell lymphoma
     Dosage: 2  TABLET
     Route: 048
  11. SELINEXOR [Suspect]
     Active Substance: SELINEXOR
     Route: 048
  12. IFOSFAMIDE [Suspect]
     Active Substance: IFOSFAMIDE
     Indication: Diffuse large B-cell lymphoma
     Route: 042
     Dates: start: 20240208, end: 20240210
  13. IFOSFAMIDE [Suspect]
     Active Substance: IFOSFAMIDE
     Route: 042
     Dates: start: 20240415, end: 20240415
  14. IFOSFAMIDE [Suspect]
     Active Substance: IFOSFAMIDE
     Route: 042
     Dates: start: 20240319, end: 20240321
  15. ETOPOSIDE [Suspect]
     Active Substance: ETOPOSIDE
     Indication: Diffuse large B-cell lymphoma
     Route: 042
     Dates: start: 20240208, end: 20240210
  16. ETOPOSIDE [Suspect]
     Active Substance: ETOPOSIDE
     Route: 042
     Dates: start: 20240415, end: 20240417
  17. ETOPOSIDE [Suspect]
     Active Substance: ETOPOSIDE
     Route: 042
     Dates: start: 20240319, end: 20240321
  18. CARBOPLATIN [Suspect]
     Active Substance: CARBOPLATIN
     Indication: Diffuse large B-cell lymphoma
     Route: 042
     Dates: start: 20240209, end: 20240209
  19. CARBOPLATIN [Suspect]
     Active Substance: CARBOPLATIN
     Route: 042
     Dates: start: 20240416, end: 20240416
  20. CARBOPLATIN [Suspect]
     Active Substance: CARBOPLATIN
     Route: 042
     Dates: start: 20240320, end: 20240320
  21. LEUCOGEN [Concomitant]
     Active Substance: LEUCOGEN
     Route: 048
     Dates: start: 20240207
  22. CEFACLOR [Concomitant]
     Active Substance: CEFACLOR
     Route: 048
     Dates: start: 20240207
  23. METHYLPREDNISOLONE SODIUM SUCCINATE [Concomitant]
     Active Substance: METHYLPREDNISOLONE SODIUM SUCCINATE
     Route: 042
     Dates: start: 20240512, end: 20240513
  24. METHYLPREDNISOLONE SODIUM SUCCINATE [Concomitant]
     Active Substance: METHYLPREDNISOLONE SODIUM SUCCINATE
     Route: 042
     Dates: start: 20240318, end: 20240318
  25. METHYLPREDNISOLONE SODIUM SUCCINATE [Concomitant]
     Active Substance: METHYLPREDNISOLONE SODIUM SUCCINATE
     Route: 042
     Dates: start: 20240318, end: 20240318
  26. PROMETHAZINE HYDROCHLORIDE [Concomitant]
     Active Substance: PROMETHAZINE HYDROCHLORIDE
     Indication: Prophylaxis
     Route: 030
     Dates: start: 20240208, end: 20240208
  27. PROMETHAZINE HYDROCHLORIDE [Concomitant]
     Active Substance: PROMETHAZINE HYDROCHLORIDE
     Route: 030
     Dates: start: 20240318, end: 20240318
  28. PROMETHAZINE HYDROCHLORIDE [Concomitant]
     Active Substance: PROMETHAZINE HYDROCHLORIDE
     Route: 030
     Dates: start: 20240319, end: 20240319
  29. PROMETHAZINE HYDROCHLORIDE [Concomitant]
     Active Substance: PROMETHAZINE HYDROCHLORIDE
     Route: 030
     Dates: start: 20240207, end: 20240209
  30. Omeprazole Enteric-coated Capsules [Concomitant]
     Route: 048
     Dates: start: 20240207, end: 20240214
  31. Omeprazole Enteric-coated Capsules [Concomitant]
     Route: 048
     Dates: start: 20240318, end: 20240318
  32. Omeprazole Enteric-coated Capsules [Concomitant]
     Route: 048
     Dates: start: 20240512, end: 20240513
  33. Omeprazole Enteric-coated Capsules [Concomitant]
     Route: 048
     Dates: start: 20240515, end: 20240528
  34. Palonosetron hydrochloride capsules [Concomitant]
     Route: 048
     Dates: start: 20240318, end: 20240318
  35. Palonosetron hydrochloride capsules [Concomitant]
     Dosage: 1 CAPSULE
     Route: 048
     Dates: start: 20240319
  36. Palonosetron hydrochloride capsules [Concomitant]
     Route: 048
     Dates: start: 20240207, end: 20240207
  37. Compound acetaminophen tablets [Concomitant]
     Route: 048
     Dates: start: 20240319, end: 20240319
  38. Compound acetaminophen tablets [Concomitant]
     Route: 048
     Dates: start: 20240208, end: 20240208
  39. CEFTAZIDIME [Concomitant]
     Active Substance: CEFTAZIDIME
     Route: 042
     Dates: start: 20240319, end: 20240322
  40. CEFTAZIDIME [Concomitant]
     Active Substance: CEFTAZIDIME
     Route: 042
     Dates: start: 20240318, end: 20240318
  41. ACETAMINOPHEN\ASPIRIN\CAFFEINE [Concomitant]
     Active Substance: ACETAMINOPHEN\ASPIRIN\CAFFEINE
     Route: 048
     Dates: start: 20240515, end: 20240528
  42. ACETAMINOPHEN\ASPIRIN\CAFFEINE [Concomitant]
     Active Substance: ACETAMINOPHEN\ASPIRIN\CAFFEINE
     Route: 048
     Dates: start: 20240512, end: 20240513
  43. DEXAMETHASONE SODIUM PHOSPHATE [Concomitant]
     Active Substance: DEXAMETHASONE SODIUM PHOSPHATE
     Route: 042
     Dates: start: 20240515, end: 20240528
  44. LORATADINE [Concomitant]
     Active Substance: LORATADINE
     Route: 048
     Dates: start: 20240515, end: 20240528
  45. CEFTRIAXONE SODIUM [Concomitant]
     Active Substance: CEFTRIAXONE SODIUM
     Route: 042
     Dates: start: 20240202, end: 20240202
  46. GRANULOCYTE COLONY-STIMULATING FACTOR NOS [Concomitant]
     Active Substance: GRANULOCYTE COLONY-STIMULATING FACTOR NOS
     Route: 058
     Dates: start: 20240511, end: 20240511
  47. LIDOCAINE HYDROCHLORIDE [Concomitant]
     Active Substance: LIDOCAINE HYDROCHLORIDE
     Route: 058
     Dates: start: 20240510, end: 20240511
  48. Nitopitan Palonosetron Capsules [Concomitant]
     Dosage: 1 TABLET
     Route: 048
     Dates: start: 20240319, end: 20240323

REACTIONS (12)
  - Platelet count decreased [Recovered/Resolved]
  - Neutrophil count decreased [Recovered/Resolved]
  - Urinary occult blood positive [Not Recovered/Not Resolved]
  - Lymphocyte count decreased [Recovered/Resolved]
  - Hypokalaemia [Recovered/Resolved]
  - Hypocalcaemia [Recovered/Resolved]
  - Hypoalbuminaemia [Recovered/Resolved]
  - Red blood cell count increased [Not Recovered/Not Resolved]
  - Aspartate aminotransferase decreased [Recovered/Resolved]
  - Alanine aminotransferase decreased [Recovered/Resolved]
  - White blood cell count decreased [Recovered/Resolved]
  - Hypomagnesaemia [Recovered/Resolved]

NARRATIVE: CASE EVENT DATE: 20240209
